FAERS Safety Report 19766648 (Version 3)
Quarter: 2021Q4

REPORT INFORMATION
  Report Type: Report from Study
  Country: ES (occurrence: ES)
  Receive Date: 20210830
  Receipt Date: 20211112
  Transmission Date: 20220303
  Serious: Yes (Hospitalization)
  Sender: FDA-Public Use
  Company Number: ES-JNJFOC-20210841896

PATIENT

DRUGS (2)
  1. SPRAVATO [Suspect]
     Active Substance: ESKETAMINE
     Indication: Depression
     Dates: start: 20210809
  2. SPRAVATO [Suspect]
     Active Substance: ESKETAMINE
     Dates: start: 20210810

REACTIONS (4)
  - Depression [Unknown]
  - Suicidal ideation [Unknown]
  - Dissociative disorder [Unknown]
  - Drug ineffective [Unknown]

NARRATIVE: CASE EVENT DATE: 20210810
